FAERS Safety Report 10514011 (Version 1)
Quarter: 2014Q4

REPORT INFORMATION
  Report Type: Spontaneous
  Country: US (occurrence: US)
  Receive Date: 20141013
  Receipt Date: 20141013
  Transmission Date: 20150528
  Serious: No
  Sender: FDA-Public Use
  Company Number: US-PFIZER INC-2014277457

PATIENT

DRUGS (1)
  1. RAPAMUNE [Suspect]
     Active Substance: SIROLIMUS
     Dosage: UNK

REACTIONS (1)
  - Drug hypersensitivity [Unknown]
